FAERS Safety Report 7580020-9 (Version None)
Quarter: 2011Q2

REPORT INFORMATION
  Report Type: 
  Country: None (occurrence: None)
  Receive Date: 20110629
  Receipt Date: 20110622
  Transmission Date: 20111010
  Serious: Yes (Hospitalization, Other)
  Sender: FDA-Public Use
  Company Number: JP-BRISTOL-MYERS SQUIBB COMPANY-15727555

PATIENT
  Age: 84 Year
  Sex: Female
  Weight: 38 kg

DRUGS (6)
  1. ABILIFY [Suspect]
     Dosage: 6MG STRENGTH
     Route: 048
     Dates: start: 20110404, end: 20110401
  2. LANSOPRAZOLE [Concomitant]
     Dosage: TABLET
     Dates: start: 20090815, end: 20110416
  3. CEPHADOL [Concomitant]
     Dosage: TABLET
     Dates: start: 20100726
  4. BONALON [Concomitant]
     Dosage: TABLET
     Dates: start: 20100410, end: 20110416
  5. EPLERENONE [Concomitant]
     Dosage: TABLET
     Dates: start: 20100726
  6. SUNRYTHM [Concomitant]
     Dosage: CAPSULE
     Dates: start: 20100508

REACTIONS (3)
  - FEMORAL NECK FRACTURE [None]
  - FALL [None]
  - ANAEMIA [None]
